FAERS Safety Report 9286686 (Version 1)
Quarter: 2013Q2

REPORT INFORMATION
  Report Type: Spontaneous
  Country: BR (occurrence: BR)
  Receive Date: 20130513
  Receipt Date: 20130513
  Transmission Date: 20140414
  Serious: Yes (Hospitalization)
  Sender: FDA-Public Use
  Company Number: BR-PERRIGO-13BR004857

PATIENT
  Age: 23 Year
  Sex: Female

DRUGS (1)
  1. LANSOPRAZOLE 15 MG 3T3 [Suspect]
     Indication: DYSPEPSIA
     Dosage: UNK, UNK
     Route: 048

REACTIONS (11)
  - Toxic epidermal necrolysis [Recovering/Resolving]
  - Eye pruritus [Recovered/Resolved]
  - Vulvovaginal pruritus [Recovered/Resolved]
  - Rash macular [Recovered/Resolved]
  - Pyrexia [Recovered/Resolved]
  - Tachycardia [Recovered/Resolved]
  - Blister [Recovered/Resolved]
  - Skin lesion [Recovered/Resolved]
  - Skin erosion [Recovered/Resolved]
  - Scab [Recovered/Resolved]
  - Oral mucosa erosion [Recovered/Resolved]
